FAERS Safety Report 17227901 (Version 1)
Quarter: 2020Q1

REPORT INFORMATION
  Report Type: Spontaneous
  Country: US (occurrence: US)
  Receive Date: 20200103
  Receipt Date: 20200103
  Transmission Date: 20200409
  Serious: No
  Sender: FDA-Public Use
  Company Number: NVSC2020US000447

PATIENT
  Age: 41 Year
  Sex: Female

DRUGS (2)
  1. PASIREOTIDE. [Suspect]
     Active Substance: PASIREOTIDE
     Indication: PANCREATOGENOUS DIABETES
     Dosage: UNK
     Route: 065
  2. ACARBOSE. [Suspect]
     Active Substance: ACARBOSE
     Indication: PANCREATOGENOUS DIABETES
     Dosage: UNK
     Route: 065

REACTIONS (1)
  - Abdominal pain [Unknown]
